FAERS Safety Report 16406412 (Version 3)
Quarter: 2019Q3

REPORT INFORMATION
  Report Type: Report from Study
  Country: US (occurrence: US)
  Receive Date: 20190607
  Receipt Date: 20190925
  Transmission Date: 20191004
  Serious: No
  Sender: FDA-Public Use
  Company Number: PHEH2019US023697

PATIENT
  Age: 16 Year
  Sex: Female

DRUGS (1)
  1. GILENYA [Suspect]
     Active Substance: FINGOLIMOD HYDROCHLORIDE
     Indication: MULTIPLE SCLEROSIS
     Dosage: 0.5 MG, QD
     Route: 048
     Dates: start: 20190323

REACTIONS (9)
  - Hypoaesthesia [Recovering/Resolving]
  - Vomiting [Recovering/Resolving]
  - Muscular weakness [Unknown]
  - Nausea [Unknown]
  - Vertigo [Recovering/Resolving]
  - Dizziness [Recovering/Resolving]
  - Tremor [Unknown]
  - Central nervous system lesion [Unknown]
  - Paraesthesia [Recovering/Resolving]

NARRATIVE: CASE EVENT DATE: 20190908
